FAERS Safety Report 8998726 (Version 1)
Quarter: 2013Q1

REPORT INFORMATION
  Report Type: Spontaneous
  Country: EG (occurrence: EG)
  Receive Date: 20130103
  Receipt Date: 20130103
  Transmission Date: 20140127
  Serious: Yes (Death)
  Sender: FDA-Public Use
  Company Number: EG-SANOFI-AVENTIS-2012SA095404

PATIENT
  Age: 62 Year
  Sex: Male

DRUGS (1)
  1. LANTUS [Suspect]
     Indication: DIABETES MELLITUS
     Dosage: DOSE AND FREQUENCY: 25 OR 30 UNITS DAILY ACCORDING TO NEED
     Route: 058
     Dates: start: 20121121, end: 20121209

REACTIONS (1)
  - Coma hepatic [Fatal]
